FAERS Safety Report 6866727-7 (Version None)
Quarter: 2010Q3

REPORT INFORMATION
  Report Type: 
  Country: None (occurrence: None)
  Receive Date: 20100722
  Receipt Date: 20090622
  Transmission Date: 20110219
  Serious: Yes (Other)
  Sender: FDA-Public Use
  Company Number: PHHY2008PH25582

PATIENT
  Sex: Female
  Weight: 116 kg

DRUGS (3)
  1. GLEEVEC [Suspect]
     Indication: CHRONIC MYELOID LEUKAEMIA
     Dosage: 300 MG/DAY
     Dates: start: 20070701, end: 20081101
  2. GLEEVEC [Suspect]
     Dosage: 300 MG DAILY
     Dates: start: 20090209
  3. CYTARABINE [Concomitant]
     Indication: CHRONIC MYELOID LEUKAEMIA
     Dosage: 50 MG, UNK
     Route: 058
     Dates: start: 20081101

REACTIONS (4)
  - AMNIOTIC FLUID VOLUME DECREASED [None]
  - CAESAREAN SECTION [None]
  - DRUG EXPOSURE DURING PREGNANCY [None]
  - NORMAL NEWBORN [None]
